FAERS Safety Report 7734245-X (Version None)
Quarter: 2011Q3

REPORT INFORMATION
  Report Type: 
  Country: None (occurrence: None)
  Receive Date: 20110907
  Receipt Date: 20110902
  Transmission Date: 20111222
  Serious: Yes (Hospitalization, Other)
  Sender: FDA-Public Use
  Company Number: JP-PFIZER INC-2011191058

PATIENT
  Age: 86 Year
  Sex: Female

DRUGS (3)
  1. NEUROTROPIN [Suspect]
     Indication: PAIN
     Dosage: 2 DF, 2X/DAY
     Route: 048
     Dates: start: 20110812, end: 20110815
  2. KETOPROFEN [Suspect]
     Indication: PAIN
     Dosage: 50 MG, 1X/DAY
     Route: 030
     Dates: start: 20110812, end: 20110816
  3. LYRICA [Suspect]
     Indication: PAIN
     Dosage: 25 MG, 1X/DAY
     Route: 048
     Dates: start: 20110812, end: 20110815

REACTIONS (3)
  - INTERSTITIAL LUNG DISEASE [None]
  - RASH [None]
  - EOSINOPHILIC PNEUMONIA [None]
